FAERS Safety Report 12726447 (Version 1)
Quarter: 2016Q3

REPORT INFORMATION
  Report Type: Spontaneous
  Country: IT (occurrence: IT)
  Receive Date: 20160908
  Receipt Date: 20160908
  Transmission Date: 20161109
  Serious: Yes (Other)
  Sender: FDA-Public Use
  Company Number: IT-PFIZER INC-2016421597

PATIENT
  Age: 37 Year
  Sex: Female

DRUGS (2)
  1. LOETTE [Suspect]
     Active Substance: ETHINYL ESTRADIOL\LEVONORGESTREL
     Dosage: UNK
  2. TYSABRI [Suspect]
     Active Substance: NATALIZUMAB
     Dosage: UNK

REACTIONS (2)
  - Abortion spontaneous [Unknown]
  - Hyperfibrinogenaemia [Unknown]

NARRATIVE: CASE EVENT DATE: 20160420
